FAERS Safety Report 24393322 (Version 1)
Quarter: 2024Q4

REPORT INFORMATION
  Report Type: Spontaneous
  Country: US (occurrence: US)
  Receive Date: 20241003
  Receipt Date: 20241003
  Transmission Date: 20250115
  Serious: No
  Sender: HARMONY BIOSCIENCES
  Company Number: US-HARMONY BIOSCIENCES-2023HMY01768

PATIENT

DRUGS (17)
  1. WAKIX [Suspect]
     Active Substance: PITOLISANT HYDROCHLORIDE
     Indication: Narcolepsy
     Dosage: 8.9 MG, 1X/DAY
     Route: 048
     Dates: start: 2023, end: 2023
  2. WAKIX [Suspect]
     Active Substance: PITOLISANT HYDROCHLORIDE
     Indication: Narcolepsy
     Dosage: 17.8 MG, 1X/DAY
     Route: 048
     Dates: start: 2023, end: 2023
  3. WAKIX [Suspect]
     Active Substance: PITOLISANT HYDROCHLORIDE
     Dosage: 17.8 MG, 1X/DAY
     Route: 048
     Dates: start: 2023
  4. THRIVE COMPLETE [Concomitant]
  5. VALSARTAN [Concomitant]
     Active Substance: VALSARTAN
     Dosage: 40 MG, 1X/DAY
     Route: 048
  6. BUSPIRONE [Concomitant]
     Active Substance: BUSPIRONE HYDROCHLORIDE
  7. ALPRAZOLAM [Concomitant]
     Active Substance: ALPRAZOLAM
  8. TRAMADOL [Concomitant]
     Active Substance: TRAMADOL
  9. RIZATRIPTAN [Concomitant]
     Active Substance: RIZATRIPTAN
     Dosage: UNK, AS NEEDED
  10. ZOFRAN [Concomitant]
     Active Substance: ONDANSETRON HYDROCHLORIDE
  11. SEMAGLUTIDE [Concomitant]
     Active Substance: SEMAGLUTIDE
  12. TESTOSTERONE [Concomitant]
     Active Substance: TESTOSTERONE
  13. PROGESTERONE [Concomitant]
     Active Substance: PROGESTERONE
  14. MAGNESIUM [Concomitant]
     Active Substance: MAGNESIUM
  15. OPTIFERIN C [Concomitant]
  16. MYOMINE [Concomitant]
  17. WELLBUTRIN SR [Concomitant]
     Active Substance: BUPROPION HYDROCHLORIDE

REACTIONS (2)
  - Abortion spontaneous [Recovered/Resolved]
  - Exposure during pregnancy [Recovered/Resolved]

NARRATIVE: CASE EVENT DATE: 20230101
